FAERS Safety Report 4948926-4 (Version None)
Quarter: 2006Q1

REPORT INFORMATION
  Report Type: 
  Country: None (occurrence: None)
  Receive Date: 20060316
  Receipt Date: 20060306
  Transmission Date: 20060701
  Serious: Yes (Other)
  Sender: FDA-Public Use
  Company Number: 2006033199

PATIENT
  Sex: Female
  Weight: 80.2867 kg

DRUGS (4)
  1. ZYRTEC [Suspect]
     Indication: SINUSITIS
  2. LOTREL [Concomitant]
  3. BISOPROLOL (BISOPROLOL) [Concomitant]
  4. NEXIUM [Concomitant]

REACTIONS (6)
  - ASTHMA [None]
  - DEPRESSION [None]
  - DRUG INEFFECTIVE [None]
  - FALL [None]
  - HEAD INJURY [None]
  - ROAD TRAFFIC ACCIDENT [None]
